FAERS Safety Report 9136334 (Version 1)
Quarter: 2013Q1

REPORT INFORMATION
  Report Type: Spontaneous
  Country: US (occurrence: US)
  Receive Date: 20130219
  Receipt Date: 20130219
  Transmission Date: 20140127
  Serious: No
  Sender: FDA-Public Use
  Company Number: US-BRISTOL-MYERS SQUIBB COMPANY-16517732

PATIENT
  Age: 35 Year
  Sex: Female

DRUGS (8)
  1. ABATACEPT SUBQ INJECTION 125MG/ML [Suspect]
     Indication: RHEUMATOID ARTHRITIS
     Dosage: LAST DOSE:6APR12
     Route: 058
     Dates: start: 201112, end: 20120613
  2. IMURAN [Concomitant]
  3. PLAQUENIL [Concomitant]
  4. PREDNISONE [Concomitant]
  5. HEPARIN [Concomitant]
  6. BENTYL [Concomitant]
  7. TYLENOL #4 [Concomitant]
  8. WELCHOL [Concomitant]
     Dosage: 3 TABS OF WELCHOL 625MG

REACTIONS (1)
  - Asthma [Recovered/Resolved]
